FAERS Safety Report 25597035 (Version 1)
Quarter: 2025Q3

REPORT INFORMATION
  Report Type: Spontaneous
  Country: US (occurrence: US)
  Receive Date: 20250723
  Receipt Date: 20250723
  Transmission Date: 20251021
  Serious: No
  Sender: KINDEVA DRUG DELIVERY L.P.
  Company Number: US-Kindeva Drug Delivery L.P.-2181040

PATIENT
  Age: 69 Year
  Sex: Female

DRUGS (1)
  1. ALBUTEROL SULFATE [Suspect]
     Active Substance: ALBUTEROL SULFATE
     Indication: Asthma
     Dates: start: 20250331

REACTIONS (7)
  - Wheezing [Recovering/Resolving]
  - Device defective [Unknown]
  - Gait inability [Unknown]
  - Cough [Unknown]
  - Dyspnoea [Unknown]
  - Condition aggravated [Unknown]
  - Drug delivery system malfunction [Unknown]

NARRATIVE: CASE EVENT DATE: 20250501
